FAERS Safety Report 25141530 (Version 2)
Quarter: 2025Q2

REPORT INFORMATION
  Report Type: Spontaneous
  Country: US (occurrence: US)
  Receive Date: 20250331
  Receipt Date: 20250418
  Transmission Date: 20250717
  Serious: No
  Sender: FRESENIUS KABI
  Company Number: US-FreseniusKabi-FK202504811

PATIENT
  Age: 81 Year
  Sex: Female
  Weight: 65.77 kg

DRUGS (2)
  1. DIPRIVAN [Suspect]
     Active Substance: PROPOFOL
     Indication: Sedative therapy
     Route: 042
     Dates: start: 20250319, end: 20250319
  2. PROPOFOL [Concomitant]
     Active Substance: PROPOFOL
     Indication: Product used for unknown indication

REACTIONS (1)
  - Chills [Recovered/Resolved]

NARRATIVE: CASE EVENT DATE: 20250319
